FAERS Safety Report 4673600-1 (Version None)
Quarter: 2005Q2

REPORT INFORMATION
  Report Type: 
  Country: None (occurrence: None)
  Receive Date: 20050525
  Receipt Date: 20050523
  Transmission Date: 20051028
  Serious: Yes (Life-Threatening)
  Sender: FDA-Public Use
  Company Number: PHRM2005FR01606

PATIENT
  Age: 63 Year
  Sex: Male
  Weight: 69 kg

DRUGS (8)
  1. TAREG [Suspect]
     Indication: HYPERTENSION
     Dosage: 1 DF, QD
     Route: 048
     Dates: end: 20050421
  2. ALDACTAZIDE [Suspect]
     Indication: HYPERTENSION
     Dosage: 0.5 DF, QD
     Route: 048
     Dates: end: 20050421
  3. ALOPEXY [Suspect]
     Indication: ALOPECIA
     Dosage: 2 ML, QD
     Route: 061
     Dates: start: 20050404, end: 20050421
  4. MONO-TILDIEM - SLOW RELEASE [Suspect]
     Indication: HYPERTENSION
     Dosage: 1 DF, QD
     Route: 048
     Dates: end: 20050421
  5. TAHOR [Concomitant]
     Indication: HYPERCHOLESTEROLAEMIA
     Dosage: 1 DF, QD
     Route: 048
  6. KARDEGIC [Concomitant]
     Dosage: 160 MG, QD
     Route: 048
  7. BIOTIN [Concomitant]
     Indication: ALOPECIA
     Dosage: 4 TABS/DAY
     Route: 048
     Dates: start: 20050404, end: 20050421
  8. BEPANTHEN [Concomitant]
     Indication: ALOPECIA
     Dosage: UNK, UNK
     Route: 048
     Dates: start: 20050404, end: 20050421

REACTIONS (2)
  - CHEST PAIN [None]
  - MYOCARDIAL INFARCTION [None]
